FAERS Safety Report 7162156-X (Version None)
Quarter: 2010Q4

REPORT INFORMATION
  Report Type: 
  Country: None (occurrence: None)
  Receive Date: 20101215
  Receipt Date: 20090831
  Transmission Date: 20110411
  Serious: Yes (Other)
  Sender: FDA-Public Use
  Company Number: DE-PFIZER INC-2009241293

PATIENT
  Age: 56 Year

DRUGS (4)
  1. LYRICA [Suspect]
     Indication: NEUROPATHY PERIPHERAL
     Dosage: 100 MG, 1X/DAY
     Route: 048
     Dates: start: 20090710, end: 20090713
  2. ASPIRIN [Concomitant]
     Dosage: 100 UNK, UNK
  3. METOPROLOL SUCCINATE [Concomitant]
     Dosage: 47.5 UNK, UNK
  4. NOVOTHYRAL [Concomitant]

REACTIONS (1)
  - HYPERTENSION [None]
